FAERS Safety Report 6619770-7 (Version None)
Quarter: 2010Q1

REPORT INFORMATION
  Report Type: 
  Country: None (occurrence: None)
  Receive Date: 20100309
  Receipt Date: 20100304
  Transmission Date: 20100710
  Serious: Yes (Death, Hospitalization)
  Sender: FDA-Public Use
  Company Number: JP-BAYER-200812896BYL

PATIENT
  Age: 61 Year
  Sex: Male
  Weight: 63 kg

DRUGS (16)
  1. NEXAVAR [Suspect]
     Indication: RENAL CELL CARCINOMA
     Dosage: UNIT DOSE: 200 MG
     Route: 048
     Dates: start: 20080518, end: 20080603
  2. NEXAVAR [Suspect]
     Dosage: TOTAL DAILY DOSE: 200 MG  UNIT DOSE: 200 MG
     Route: 048
     Dates: start: 20080701, end: 20081115
  3. NEXAVAR [Suspect]
     Dosage: TOTAL DAILY DOSE: 200 MG  UNIT DOSE: 200 MG
     Route: 048
     Dates: start: 20080603, end: 20080607
  4. NORVASC [Concomitant]
     Dosage: TOTAL DAILY DOSE: 10 MG
     Route: 048
     Dates: start: 20080608, end: 20080624
  5. MEXITIL [Concomitant]
     Dosage: TOTAL DAILY DOSE: 100 MG
     Route: 048
     Dates: start: 20080610, end: 20080627
  6. HALFDIGOXIN [Concomitant]
     Dosage: TOTAL DAILY DOSE: 0.125 MG
     Route: 048
     Dates: start: 20080610, end: 20080624
  7. HALCION [Concomitant]
     Dosage: TOTAL DAILY DOSE: 0.125 MG
     Route: 048
     Dates: start: 20080610, end: 20080627
  8. MOHRUS [Concomitant]
     Dosage: TOTAL DAILY DOSE: 30 MG
     Route: 062
     Dates: start: 20080610, end: 20080101
  9. SELBEX [Concomitant]
     Dosage: TOTAL DAILY DOSE: 150 MG
     Route: 048
     Dates: start: 20080610, end: 20080617
  10. PRECIPITATED CALCIUM CARBONATE [Concomitant]
     Dosage: TOTAL DAILY DOSE: 1.5 MG
     Route: 048
     Dates: start: 20080610, end: 20080627
  11. MICARDIS [Concomitant]
     Dosage: TOTAL DAILY DOSE: 20 MG
     Route: 048
     Dates: start: 20080610, end: 20080617
  12. ALOSENN [Concomitant]
     Dosage: TOTAL DAILY DOSE: 1.0 G
     Route: 048
     Dates: start: 20080619
  13. CELECOX [Concomitant]
     Dosage: TOTAL DAILY DOSE: 200 MG
     Route: 048
     Dates: start: 20080619, end: 20080624
  14. SOLITA-T NO.1 [Concomitant]
     Dosage: TOTAL DAILY DOSE: 500 MG
     Route: 041
     Dates: start: 20080609, end: 20080612
  15. NESP [Concomitant]
     Route: 042
     Dates: start: 20080611, end: 20080618
  16. RECTOS [Concomitant]
     Route: 061
     Dates: start: 20080903, end: 20080928

REACTIONS (5)
  - DIARRHOEA [None]
  - LIPASE INCREASED [None]
  - PALMAR-PLANTAR ERYTHRODYSAESTHESIA SYNDROME [None]
  - PNEUMONIA [None]
  - THROMBOCYTOPENIA [None]
